FAERS Safety Report 11714685 (Version 2)
Quarter: 2016Q3

REPORT INFORMATION
  Report Type: Spontaneous
  Country: CA (occurrence: CA)
  Receive Date: 20151109
  Receipt Date: 20160715
  Transmission Date: 20161109
  Serious: Yes (Hospitalization)
  Sender: FDA-Public Use
  Company Number: CA-SA-2015SA174697

PATIENT
  Age: 57 Year
  Sex: Female

DRUGS (11)
  1. PANTOLOC [Concomitant]
     Active Substance: PANTOPRAZOLE SODIUM
  2. PERINDOPRIL [Concomitant]
     Active Substance: PERINDOPRIL
  3. METFORMIN [Concomitant]
     Active Substance: METFORMIN HYDROCHLORIDE
  4. METOPROLOL. [Concomitant]
     Active Substance: METOPROLOL
  5. ASA [Concomitant]
     Active Substance: ASPIRIN
  6. TRAVOPROST [Concomitant]
     Active Substance: TRAVOPROST
  7. LEFLUNOMIDE. [Suspect]
     Active Substance: LEFLUNOMIDE
     Indication: RHEUMATOID ARTHRITIS
     Route: 065
     Dates: start: 201408, end: 201410
  8. METHOTREXATE. [Suspect]
     Active Substance: METHOTREXATE
     Indication: RHEUMATOID ARTHRITIS
     Route: 048
     Dates: start: 201304, end: 201601
  9. FOLIC ACID. [Concomitant]
     Active Substance: FOLIC ACID
  10. FERROUS FUMARATE [Concomitant]
     Active Substance: FERROUS FUMARATE
  11. LIPITOR [Concomitant]
     Active Substance: ATORVASTATIN CALCIUM

REACTIONS (3)
  - Hypoglycaemia [Unknown]
  - Decreased appetite [Unknown]
  - Anaemia [Unknown]

NARRATIVE: CASE EVENT DATE: 201410
